FAERS Safety Report 24049726 (Version 1)
Quarter: 2024Q3

REPORT INFORMATION
  Report Type: Report from Study
  Country: PH (occurrence: PH)
  Receive Date: 20240704
  Receipt Date: 20240704
  Transmission Date: 20241017
  Serious: Yes (Other)
  Sender: RANBAXY
  Company Number: PH-SUN PHARMACEUTICAL INDUSTRIES LTD-2024R1-454833

PATIENT
  Age: 60 Year
  Sex: Male

DRUGS (1)
  1. METHOTREXATE [Suspect]
     Active Substance: METHOTREXATE
     Indication: Central nervous system lymphoma
     Dosage: 8 GRAM PER SQUARE METRE, EVERY 14 DAYS (HIGH DOSE)
     Route: 065

REACTIONS (1)
  - Neoplasm recurrence [Unknown]
